FAERS Safety Report 25546077 (Version 1)
Quarter: 2025Q3

REPORT INFORMATION
  Report Type: Spontaneous
  Country: EU (occurrence: EU)
  Receive Date: 20250712
  Receipt Date: 20250712
  Transmission Date: 20251020
  Serious: Yes (Other)
  Sender: AMGEN
  Company Number: EU-AMGEN-FRASP2025132792

PATIENT
  Age: 28 Year
  Sex: Female

DRUGS (15)
  1. BEVACIZUMAB [Suspect]
     Active Substance: BEVACIZUMAB
     Indication: Pinealoblastoma
     Dosage: 10 MILLIGRAM/KILOGRAM, Q2WK
     Route: 040
  2. BEVACIZUMAB [Suspect]
     Active Substance: BEVACIZUMAB
     Route: 040
  3. BEVACIZUMAB [Suspect]
     Active Substance: BEVACIZUMAB
     Route: 040
  4. THALIDOMIDE [Suspect]
     Active Substance: THALIDOMIDE
     Indication: Pinealoblastoma
     Dosage: 3 MILLIGRAM/KILOGRAM, QD
     Route: 048
  5. THALIDOMIDE [Suspect]
     Active Substance: THALIDOMIDE
     Route: 048
  6. FENOFIBRATE [Concomitant]
     Active Substance: FENOFIBRATE
     Dosage: 90 MILLIGRAM/SQ. METER, QD
     Route: 048
  7. FENOFIBRATE [Concomitant]
     Active Substance: FENOFIBRATE
     Route: 048
  8. CELECOXIB [Concomitant]
     Active Substance: CELECOXIB
     Dosage: 400 MILLIGRAM X 2, BID
     Route: 048
  9. CELECOXIB [Concomitant]
     Active Substance: CELECOXIB
     Route: 048
  10. ETOPOSIDE [Concomitant]
     Active Substance: ETOPOSIDE
     Route: 048
  11. ETOPOSIDE [Concomitant]
     Active Substance: ETOPOSIDE
     Route: 048
  12. CYCLOPHOSPHAMIDE [Concomitant]
     Active Substance: CYCLOPHOSPHAMIDE
     Route: 048
  13. CYCLOPHOSPHAMIDE [Concomitant]
     Active Substance: CYCLOPHOSPHAMIDE
     Route: 048
  14. SULFAMETHOXAZOLE AND TRIMETHOPRIM [Concomitant]
     Active Substance: SULFAMETHOXAZOLE\TRIMETHOPRIM
     Indication: Infection prophylaxis
  15. TEMOZOLOMIDE [Concomitant]
     Active Substance: TEMOZOLOMIDE

REACTIONS (6)
  - Metastases to central nervous system [Unknown]
  - Meningitis bacterial [Unknown]
  - Neuropathy peripheral [Unknown]
  - Neutropenia [Unknown]
  - Therapy partial responder [Unknown]
  - Off label use [Unknown]
